FAERS Safety Report 17868118 (Version 1)
Quarter: 2020Q2

REPORT INFORMATION
  Report Type: Report from Study
  Country: NL (occurrence: NL)
  Receive Date: 20200605
  Receipt Date: 20200605
  Transmission Date: 20200714
  Serious: Yes (Other)
  Sender: FDA-Public Use
  Company Number: NL-AMGEN-NLDSL2020086721

PATIENT
  Sex: Female

DRUGS (1)
  1. NEULASTA [Suspect]
     Active Substance: PEGFILGRASTIM
     Indication: NEUTROPENIA
     Dosage: 0.6 MILLILITER, Q3WK
     Route: 058

REACTIONS (3)
  - Pain [Recovered/Resolved]
  - Back pain [Recovered/Resolved]
  - Deafness transitory [Recovered/Resolved]
